FAERS Safety Report 9563252 (Version 2)
Quarter: 2014Q2

REPORT INFORMATION
  Report Type: Spontaneous
  Country: FR (occurrence: FR)
  Receive Date: 20130927
  Receipt Date: 20140528
  Transmission Date: 20141212
  Serious: Yes (Death, Hospitalization, Other)
  Sender: FDA-Public Use
  Company Number: FR-TEVA-434583USA

PATIENT
  Sex: Female

DRUGS (18)
  1. LEVACT [Suspect]
     Indication: B-CELL LYMPHOMA
     Route: 041
     Dates: start: 201109, end: 201205
  2. DOXORUBICIN NOS [Suspect]
     Indication: B-CELL LYMPHOMA
     Route: 051
     Dates: start: 2007, end: 2008
  3. VINCRISTINE [Suspect]
     Indication: B-CELL LYMPHOMA
     Route: 051
     Dates: start: 2007, end: 2008
  4. ENDOXAN [Suspect]
     Indication: B-CELL LYMPHOMA
     Route: 042
     Dates: start: 2007, end: 2008
  5. PREDNISONE [Suspect]
     Indication: B-CELL LYMPHOMA
     Dates: start: 2007, end: 2008
  6. INTERFERON [Suspect]
     Indication: B-CELL LYMPHOMA
     Route: 058
     Dates: start: 2007
  7. MABTHERA [Suspect]
     Indication: B-CELL LYMPHOMA
     Route: 051
     Dates: start: 2009, end: 201205
  8. ZEVALIN [Suspect]
     Indication: B-CELL LYMPHOMA
     Route: 042
     Dates: start: 200911, end: 200911
  9. LEDERFOLINE [Concomitant]
  10. TRAMADOL [Concomitant]
  11. LYRICA [Concomitant]
  12. RASILEZ [Concomitant]
  13. BACTRIM [Concomitant]
  14. PANTOPRAZOLE [Concomitant]
  15. MOVICOL [Concomitant]
  16. DOMPERIDONE [Concomitant]
  17. POTASSIUM CHLORIDE [Concomitant]
  18. SODIUM BICARBONATE [Concomitant]

REACTIONS (1)
  - Myelodysplastic syndrome [Fatal]
